FAERS Safety Report 7180257-7 (Version None)
Quarter: 2010Q4

REPORT INFORMATION
  Report Type: 
  Country: None (occurrence: None)
  Receive Date: 20101208
  Receipt Date: 20101123
  Transmission Date: 20110411
  Serious: Yes (Other)
  Sender: FDA-Public Use
  Company Number: AUR-APL-2010-02966

PATIENT
  Sex: Female

DRUGS (1)
  1. LISINOPRIL [Suspect]
     Indication: HYPERTENSION

REACTIONS (5)
  - ARTHRALGIA [None]
  - FIBROADENOMA OF BREAST [None]
  - FOOT DEFORMITY [None]
  - FOOT FRACTURE [None]
  - POSTMENOPAUSAL HAEMORRHAGE [None]
